FAERS Safety Report 7094562-6 (Version None)
Quarter: 2010Q4

REPORT INFORMATION
  Report Type: 
  Country: None (occurrence: None)
  Receive Date: 20101110
  Receipt Date: 20101104
  Transmission Date: 20110411
  Serious: Yes (Death)
  Sender: FDA-Public Use
  Company Number: PHHY2010FR26602

PATIENT
  Sex: Female
  Weight: 63 kg

DRUGS (5)
  1. TASIGNA [Suspect]
     Indication: CHRONIC MYELOID LEUKAEMIA
     Dosage: 400 MG, BID
     Route: 048
     Dates: start: 20071126
  2. APROVEL [Concomitant]
     Indication: HYPERTENSION
     Dosage: 300 MG DAILY
  3. TAHOR [Concomitant]
     Indication: CEREBROVASCULAR ACCIDENT
     Dosage: 80 MG DAILY
  4. CORVASAL [Concomitant]
     Indication: HYPERTENSION
     Dosage: 4 MG DAILY
  5. ASPEGIC 1000 [Concomitant]
     Indication: CEREBROVASCULAR ACCIDENT
     Dosage: 250 MG DAILY

REACTIONS (7)
  - ARTERIOSCLEROSIS [None]
  - CEREBRAL ARTERY THROMBOSIS [None]
  - CEREBROVASCULAR ACCIDENT [None]
  - COMA [None]
  - HEMIPLEGIA [None]
  - ISCHAEMIC STROKE [None]
  - VERTEBROBASILAR INSUFFICIENCY [None]
